FAERS Safety Report 5042923-9 (Version None)
Quarter: 2006Q2

REPORT INFORMATION
  Report Type: 
  Country: None (occurrence: None)
  Receive Date: 20060627
  Receipt Date: 20060613
  Transmission Date: 20061013
  Serious: Yes (Death)
  Sender: FDA-Public Use
  Company Number: 2006-115

PATIENT
  Age: 62 Year
  Sex: Male
  Weight: 95 kg

DRUGS (2)
  1. CITALOPRAM [Suspect]
     Indication: DEPRESSED MOOD
     Dosage: 20MG TWO TIMES DAILY
     Dates: start: 20060117
  2. ACETAMINOPHEN W/ CODEINE [Concomitant]

REACTIONS (1)
  - COMPLETED SUICIDE [None]
